FAERS Safety Report 24923208 (Version 2)
Quarter: 2025Q1

REPORT INFORMATION
  Report Type: Spontaneous
  Country: US (occurrence: US)
  Receive Date: 20250204
  Receipt Date: 20250219
  Transmission Date: 20250409
  Serious: No
  Sender: ROCHE
  Company Number: US-ROCHE-10000196791

PATIENT
  Age: 45 Year
  Sex: Female
  Weight: 92.98 kg

DRUGS (6)
  1. XOLAIR PFS [Suspect]
     Active Substance: OMALIZUMAB
     Indication: Urticaria
     Dosage: DOSE IS 300MG IN THE FORM OF (2) XOLAIR 150MG PFS ONCE PER MONTH
     Route: 058
     Dates: start: 2020
  2. XOLAIR PFS [Suspect]
     Active Substance: OMALIZUMAB
  3. ALLEGRA [Concomitant]
     Active Substance: FEXOFENADINE HYDROCHLORIDE
     Indication: Urticaria
     Dosage: TAKES (4) 24-HOUR ALLEGRA - 2 TABLETS IN AM, 2 TABLETS IN PM
     Route: 048
     Dates: start: 2020
  4. ALLEGRA [Concomitant]
     Active Substance: FEXOFENADINE HYDROCHLORIDE
     Indication: Pruritus
  5. SINGULAIR [Concomitant]
     Active Substance: MONTELUKAST SODIUM
     Indication: Asthma
     Dosage: TAKES (4) 24-HOUR ALLEGRA - 2 TABLETS IN AM, 2 TABLETS IN PM
     Route: 048
     Dates: start: 2020
  6. FAMOTIDINE [Concomitant]
     Active Substance: FAMOTIDINE
     Dosage: TAKES (4) 24-HOUR ALLEGRA - 2 TABLETS IN AM, 2 TABLETS IN PM
     Route: 048
     Dates: start: 202412

REACTIONS (5)
  - Product dose omission issue [Unknown]
  - Device issue [Unknown]
  - Pruritus [Not Recovered/Not Resolved]
  - Rash [Not Recovered/Not Resolved]
  - Product quality issue [Unknown]

NARRATIVE: CASE EVENT DATE: 20250128
